FAERS Safety Report 25734447 (Version 2)
Quarter: 2025Q3

REPORT INFORMATION
  Report Type: Spontaneous
  Country: US (occurrence: US)
  Receive Date: 20250828
  Receipt Date: 20250924
  Transmission Date: 20251021
  Serious: No
  Sender: MERCK SHARP & DOHME LLC
  Company Number: US-009507513-2316242

PATIENT
  Age: 78 Year
  Sex: Male

DRUGS (2)
  1. CILASTATIN SODIUM\IMIPENEM [Suspect]
     Active Substance: CILASTATIN SODIUM\IMIPENEM
  2. CEFOXITIN [Suspect]
     Active Substance: CEFOXITIN SODIUM

REACTIONS (7)
  - Eosinophilia [Unknown]
  - Rash [Unknown]
  - Ventricular extrasystoles [Unknown]
  - Atrioventricular block second degree [Unknown]
  - Sleep apnoea syndrome [Unknown]
  - Thyroid disorder [Unknown]
  - Supraventricular tachycardia [Unknown]

NARRATIVE: CASE EVENT DATE: 20250401
